FAERS Safety Report 11842657 (Version 1)
Quarter: 2015Q4

REPORT INFORMATION
  Report Type: Spontaneous
  Country: FR (occurrence: FR)
  Receive Date: 20151216
  Receipt Date: 20151216
  Transmission Date: 20160305
  Serious: Yes (Other)
  Sender: FDA-Public Use
  Company Number: FR-GILEAD-2015-0188070

PATIENT
  Age: 47 Year
  Sex: Female

DRUGS (7)
  1. HARVONI [Suspect]
     Active Substance: LEDIPASVIR\SOFOSBUVIR
     Indication: CHRONIC HEPATITIS C
     Dosage: 1 DF, QD
     Route: 065
     Dates: start: 20150128, end: 20150723
  2. EPIVIR [Concomitant]
     Active Substance: LAMIVUDINE
     Dosage: 150 MG, BID
     Route: 065
  3. TRACLEER [Concomitant]
     Active Substance: BOSENTAN
     Dosage: 125 MG, BID
     Route: 065
  4. SERESTA [Concomitant]
     Active Substance: OXAZEPAM
     Dosage: 50 MG, QD
     Route: 065
  5. INTELENCE [Concomitant]
     Active Substance: ETRAVIRINE
     Dosage: 200 MG, BID
     Route: 065
  6. ZIAGEN [Concomitant]
     Active Substance: ABACAVIR SULFATE
     Dosage: 300 MG, BID
     Route: 065
  7. METHADONE [Concomitant]
     Active Substance: METHADONE HYDROCHLORIDE
     Dosage: 10 MG, QD
     Route: 065

REACTIONS (3)
  - Condition aggravated [Recovered/Resolved]
  - Pulmonary arterial hypertension [Recovered/Resolved]
  - Dyspnoea [Recovered/Resolved]

NARRATIVE: CASE EVENT DATE: 20150602
